FAERS Safety Report 7319168-2 (Version None)
Quarter: 2011Q1

REPORT INFORMATION
  Report Type: 
  Country: None (occurrence: None)
  Receive Date: 20110228
  Receipt Date: 20110217
  Transmission Date: 20110831
  Serious: Yes (Other)
  Sender: FDA-Public Use
  Company Number: PHHY2011AU13955

PATIENT
  Sex: Female

DRUGS (4)
  1. ACLASTA [Suspect]
     Dosage: UNK
     Dates: start: 20091001
  2. VITAMIN B [Concomitant]
  3. ACLASTA [Suspect]
     Dosage: UNK
     Dates: start: 20101001
  4. CALCIUM [Concomitant]

REACTIONS (10)
  - INTERVERTEBRAL DISC PROTRUSION [None]
  - PAIN [None]
  - SYNOVIAL CYST [None]
  - JOINT SWELLING [None]
  - MYALGIA [None]
  - GAIT DISTURBANCE [None]
  - BACK PAIN [None]
  - ARTHRALGIA [None]
  - FATIGUE [None]
  - DISCOMFORT [None]
